FAERS Safety Report 21965699 (Version 2)
Quarter: 2023Q1

REPORT INFORMATION
  Report Type: Report from Study
  Country: CN (occurrence: CN)
  Receive Date: 20230208
  Receipt Date: 20230210
  Transmission Date: 20230417
  Serious: Yes (Hospitalization)
  Sender: FDA-Public Use
  Company Number: CN-ImmunoGen, Inc.-2022IMGN000068

PATIENT
  Age: 62 Year
  Sex: Female
  Weight: 59 kg

DRUGS (3)
  1. MIRVETUXIMAB SORAVTANSINE [Suspect]
     Active Substance: MIRVETUXIMAB SORAVTANSINE
     Indication: Neoplasm malignant
     Dosage: 348 MILLIGRAM
     Route: 041
     Dates: start: 20220412, end: 20221110
  2. HEDGEHOG FUNGUS EXTRACT [Concomitant]
     Indication: Product used for unknown indication
     Dosage: UNK UNK, UNK
     Dates: start: 20220328, end: 20220410
  3. REBAMIPIDE [Concomitant]
     Active Substance: REBAMIPIDE
     Indication: Product used for unknown indication
     Dosage: 0.1 GRAM, QD
     Dates: start: 20220405, end: 20220410

REACTIONS (1)
  - Chest discomfort [Not Recovered/Not Resolved]

NARRATIVE: CASE EVENT DATE: 20220523
